FAERS Safety Report 21533404 (Version 4)
Quarter: 2022Q4

REPORT INFORMATION
  Report Type: Spontaneous
  Country: US (occurrence: US)
  Receive Date: 20221101
  Receipt Date: 20221123
  Transmission Date: 20230113
  Serious: No
  Sender: FDA-Public Use
  Company Number: US-AMGEN-USASP2022179119

PATIENT
  Age: 73 Year
  Sex: Female

DRUGS (3)
  1. NEULASTA [Suspect]
     Active Substance: PEGFILGRASTIM
     Indication: Intraductal proliferative breast lesion
     Dosage: 6 MILLIGRAM, CYCLICAL (ONCE PER CHEMO CYCLE)
     Route: 058
     Dates: start: 20220809
  2. NEULASTA [Suspect]
     Active Substance: PEGFILGRASTIM
     Indication: Lung neoplasm malignant
     Dosage: 6 MILLIGRAM, CYCLICAL (ONCE PER CHEMO CYCLE)
     Route: 058
     Dates: start: 20220809
  3. NEULASTA [Suspect]
     Active Substance: PEGFILGRASTIM
     Indication: Breast cancer

REACTIONS (1)
  - Device adhesion issue [Unknown]

NARRATIVE: CASE EVENT DATE: 20221012
